FAERS Safety Report 5229741-3 (Version None)
Quarter: 2007Q1

REPORT INFORMATION
  Report Type: 
  Country: None (occurrence: None)
  Receive Date: 20070201
  Receipt Date: 20070119
  Transmission Date: 20070707
  Serious: Yes (Other)
  Sender: FDA-Public Use
  Company Number: PAR_1298_2007

PATIENT

DRUGS (1)
  1. PERGOLIDE MESYLATE [Suspect]
     Indication: PARKINSON'S DISEASE
     Dosage: VAR QDAY

REACTIONS (2)
  - CARDIAC VALVE DISEASE [None]
  - HEART VALVE INSUFFICIENCY [None]
